FAERS Safety Report 5379000-3 (Version None)
Quarter: 2007Q3

REPORT INFORMATION
  Report Type: 
  Country: None (occurrence: None)
  Receive Date: 20070705
  Receipt Date: 20070627
  Transmission Date: 20080115
  Serious: Yes (Hospitalization)
  Sender: FDA-Public Use
  Company Number: US-AMGEN-US231653

PATIENT
  Sex: Male

DRUGS (3)
  1. ENBREL [Suspect]
     Indication: RHEUMATOID ARTHRITIS
     Route: 058
     Dates: start: 20060201
  2. METHOTREXATE [Concomitant]
     Route: 058
     Dates: start: 20061001
  3. PLAQUENIL [Concomitant]
     Route: 048
     Dates: start: 20061001

REACTIONS (4)
  - INJECTION SITE PAIN [None]
  - MEDICAL DEVICE COMPLICATION [None]
  - PERICARDIAL EFFUSION [None]
  - PNEUMONIA [None]
